FAERS Safety Report 8900471 (Version 1)
Quarter: 2012Q4

REPORT INFORMATION
  Report Type: 
  Country: ES (occurrence: ES)
  Receive Date: 20121109
  Receipt Date: 20121109
  Transmission Date: 20130627
  Serious: Yes (Other)
  Sender: FDA-Public Use
  Company Number: PHHY2012ES102201

PATIENT
  Age: 59 Year
  Sex: Female

DRUGS (6)
  1. TEGRETOL [Suspect]
     Indication: MANIA
     Dosage: 400 mg, BID
     Route: 048
     Dates: start: 20120411
  2. HALOPERIDOL [Interacting]
     Indication: ABNORMAL BEHAVIOUR
     Dosage: 2 mg a day
     Route: 048
     Dates: start: 20120411, end: 20120412
  3. SEROQUEL [Interacting]
     Indication: ABNORMAL BEHAVIOUR
     Dosage: 200 mg, TID
     Route: 048
  4. METFORMIN [Concomitant]
     Indication: DIABETES MELLITUS
     Dosage: 850 mg daily
     Route: 048
     Dates: start: 20120405, end: 20120412
  5. OLANZAPIN [Concomitant]
     Indication: ABNORMAL BEHAVIOUR
     Dosage: 15 mg, BID
     Route: 048
     Dates: start: 20120405, end: 20120409
  6. ENALAPRIL [Concomitant]
     Indication: HYPERTENSION
     Dosage: 10 mg, UNK
     Route: 048
     Dates: start: 20120405, end: 20120409

REACTIONS (5)
  - Orthostatic hypotension [Recovered/Resolved]
  - Syncope [Recovered/Resolved]
  - Bradycardia [Recovered/Resolved]
  - Hyponatraemia [Recovered/Resolved]
  - Drug interaction [Unknown]
